FAERS Safety Report 9404860 (Version 3)
Quarter: 2014Q2

REPORT INFORMATION
  Report Type: Spontaneous
  Country: US (occurrence: US)
  Receive Date: 20130717
  Receipt Date: 20140603
  Transmission Date: 20141212
  Serious: Yes (Hospitalization, Disabling)
  Sender: FDA-Public Use
  Company Number: US-BAYER-2013-086410

PATIENT
  Age: 27 Year
  Sex: Female
  Weight: 68 kg

DRUGS (9)
  1. YASMIN [Suspect]
     Indication: DYSFUNCTIONAL UTERINE BLEEDING
     Dosage: UNK
     Dates: start: 200711, end: 200802
  2. COMBIVENT [Concomitant]
  3. ALBUTEROL [Concomitant]
     Route: 045
  4. IBUPROFEN [Concomitant]
  5. PREDNISONE [Concomitant]
     Route: 048
  6. LEVAQUIN [Concomitant]
  7. MEDROL [Concomitant]
  8. DIFLUCAN [Concomitant]
  9. PERCOCET [Concomitant]

REACTIONS (7)
  - Pulmonary embolism [None]
  - Injury [None]
  - Pain [None]
  - Deformity [None]
  - Anxiety [None]
  - Anhedonia [None]
  - Life expectancy shortened [None]
